FAERS Safety Report 16427700 (Version 1)
Quarter: 2019Q2

REPORT INFORMATION
  Report Type: Spontaneous
  Country: MX (occurrence: MX)
  Receive Date: 20190613
  Receipt Date: 20190613
  Transmission Date: 20190711
  Serious: Yes (Hospitalization, Disabling, Other)
  Sender: FDA-Public Use
  Company Number: MX-ASTRAZENECA-2019SE46959

PATIENT
  Age: 92 Year
  Sex: Female
  Weight: 50 kg

DRUGS (15)
  1. PULMICORT TURBUHALER [Suspect]
     Active Substance: BUDESONIDE
     Indication: PRODUCTIVE COUGH
     Dosage: 3 NEBULIZATION PER DAY WITH 3 OR 4 UNITS PER NEBULIZATION
     Route: 055
     Dates: start: 20150316
  2. ERDOSTEINE [Concomitant]
     Active Substance: ERDOSTEINE
     Indication: ILL-DEFINED DISORDER
     Dosage: UNKNOWN
     Route: 055
  3. PULMICORT TURBUHALER [Suspect]
     Active Substance: BUDESONIDE
     Indication: PRODUCTIVE COUGH
     Dosage: 1 NEBULIZATION PER DAY OF 3 OR 4 UNITS
     Route: 055
     Dates: end: 201905
  4. PULMICORT TURBUHALER [Suspect]
     Active Substance: BUDESONIDE
     Indication: PNEUMONIA
     Dosage: 3 NEBULIZATION PER DAY WITH 3 OR 4 UNITS PER NEBULIZATION
     Route: 055
     Dates: start: 20150316
  5. IVEL [Concomitant]
     Indication: SLEEP DISORDER
     Route: 048
     Dates: start: 201712
  6. ERDOSTEINE [Concomitant]
     Active Substance: ERDOSTEINE
     Indication: INFLAMMATION
     Dosage: UNKNOWN
     Route: 055
  7. FOSFOMYCIN [Concomitant]
     Active Substance: FOSFOMYCIN
     Indication: URINARY TRACT INFECTION
     Route: 048
     Dates: start: 20190516, end: 20190522
  8. MOTILIUM [Concomitant]
     Active Substance: DOMPERIDONE
     Indication: DYSPHAGIA
     Route: 048
     Dates: start: 20190521
  9. PULMICORT TURBUHALER [Suspect]
     Active Substance: BUDESONIDE
     Indication: PNEUMONIA
     Dosage: 1 NEBULIZATION PER DAY OF 3 OR 4 UNITS
     Route: 055
     Dates: end: 201905
  10. LEVODOPA/CARBIDOPA [Concomitant]
     Active Substance: CARBIDOPA\LEVODOPA
     Indication: PARKINSON^S DISEASE
     Dosage: 250/25 MG
     Route: 048
     Dates: start: 20180425
  11. METFORMIN [Concomitant]
     Active Substance: METFORMIN HYDROCHLORIDE
     Indication: DIABETES MELLITUS
     Route: 048
     Dates: start: 201902, end: 201902
  12. NITROFURANTOIN. [Concomitant]
     Active Substance: NITROFURANTOIN
     Indication: URINARY TRACT INFECTION
     Route: 048
     Dates: start: 20190521, end: 20190529
  13. ATACAND [Suspect]
     Active Substance: CANDESARTAN CILEXETIL
     Indication: HYPERTENSION
     Route: 048
     Dates: start: 201712
  14. CEFTRIAXONE. [Concomitant]
     Active Substance: CEFTRIAXONE
     Indication: KIDNEY INFECTION
     Route: 030
     Dates: start: 20180420, end: 20180425
  15. ATROVENT [Concomitant]
     Active Substance: IPRATROPIUM BROMIDE
     Indication: PRODUCTIVE COUGH
     Dosage: UNKNOWN
     Route: 055

REACTIONS (23)
  - Kidney infection [Recovered/Resolved]
  - Wrong technique in product usage process [Unknown]
  - Intentional product misuse [Not Recovered/Not Resolved]
  - Gait inability [Not Recovered/Not Resolved]
  - Tongue discolouration [Recovered/Resolved]
  - Dysphagia [Recovered/Resolved]
  - Humerus fracture [Recovered/Resolved]
  - Cyanosis [Recovered/Resolved]
  - Vomiting [Recovered/Resolved]
  - Muscle atrophy [Not Recovered/Not Resolved]
  - Blood glucose increased [Recovered/Resolved]
  - Dry mouth [Recovered/Resolved]
  - Urinary tract infection [Unknown]
  - Insomnia [Not Recovered/Not Resolved]
  - Hypertension [Not Recovered/Not Resolved]
  - Parkinson^s disease [Not Recovered/Not Resolved]
  - Fall [Recovered/Resolved]
  - Diarrhoea [Not Recovered/Not Resolved]
  - Hyperhidrosis [Recovered/Resolved]
  - Drug ineffective [Recovered/Resolved]
  - Medication error [Not Recovered/Not Resolved]
  - Productive cough [Recovered/Resolved]
  - Respiratory rate increased [Recovered/Resolved]

NARRATIVE: CASE EVENT DATE: 2015
